FAERS Safety Report 5355445-2 (Version None)
Quarter: 2007Q2

REPORT INFORMATION
  Report Type: 
  Country: None (occurrence: None)
  Receive Date: 20070530
  Receipt Date: 20070117
  Transmission Date: 20071010
  Serious: Yes (Hospitalization)
  Sender: FDA-Public Use
  Company Number: US200609003474

PATIENT
  Age: 45 Year
  Sex: Male
  Weight: 68 kg

DRUGS (2)
  1. ZYPREXA [Suspect]
     Dosage: SEE IMAGE
     Dates: start: 20010101, end: 20040101
  2. ZYPREXA [Suspect]
     Dosage: SEE IMAGE
     Dates: start: 20010101, end: 20040101

REACTIONS (2)
  - BIPOLAR DISORDER [None]
  - DIABETES MELLITUS INSULIN-DEPENDENT [None]
